FAERS Safety Report 20014116 (Version 1)
Quarter: 2021Q4

REPORT INFORMATION
  Report Type: Spontaneous
  Country: US (occurrence: US)
  Receive Date: 20211029
  Receipt Date: 20211029
  Transmission Date: 20220304
  Serious: Yes (Other)
  Sender: FDA-Public Use
  Company Number: US-MALLINCKRODT-T202104855

PATIENT
  Age: 57 Year
  Sex: Male

DRUGS (2)
  1. INOMAX [Suspect]
     Active Substance: NITRIC OXIDE
     Indication: Hypoxia
     Dosage: UNK (INHALATION)
     Route: 055
  2. OXYGEN [Concomitant]
     Active Substance: OXYGEN
     Indication: Hypoxia
     Dosage: UNK
     Route: 065

REACTIONS (5)
  - Brain injury [Unknown]
  - Haemodynamic instability [Unknown]
  - Hernia [Unknown]
  - Vascular access site haemorrhage [Unknown]
  - Product use issue [Unknown]
